FAERS Safety Report 16506081 (Version 1)
Quarter: 2019Q3

REPORT INFORMATION
  Report Type: Spontaneous
  Country: US (occurrence: US)
  Receive Date: 20190701
  Receipt Date: 20190701
  Transmission Date: 20191004
  Serious: No
  Sender: FDA-Public Use
  Company Number: US-CLOVIS ONCOLOGY-CLO-2019-001195

PATIENT
  Age: 60 Year
  Sex: Female

DRUGS (2)
  1. RUBRACA [Suspect]
     Active Substance: RUCAPARIB CAMSYLATE
     Indication: OVARIAN CANCER RECURRENT
     Dosage: 600 MG, BID
     Dates: start: 201905
  2. LISINOPRIL. [Concomitant]
     Active Substance: LISINOPRIL
     Indication: PRODUCT USED FOR UNKNOWN INDICATION

REACTIONS (3)
  - Blood creatinine increased [Unknown]
  - Product use in unapproved indication [Unknown]
  - Glomerular filtration rate decreased [Unknown]

NARRATIVE: CASE EVENT DATE: 2019
